FAERS Safety Report 24981906 (Version 1)
Quarter: 2025Q1

REPORT INFORMATION
  Report Type: Spontaneous
  Country: US (occurrence: None)
  Receive Date: 20250215
  Receipt Date: 20250215
  Transmission Date: 20250409
  Serious: Yes (Life-Threatening)
  Sender: FDA-CTU
  Company Number: None

PATIENT
  Age: 87 Year
  Sex: Male
  Weight: 85 kg

DRUGS (4)
  1. OPDUALAG [Suspect]
     Active Substance: NIVOLUMAB\RELATLIMAB-RMBW
     Indication: Malignant melanoma
     Route: 042
     Dates: start: 20250122
  2. GAZYVA [Concomitant]
     Active Substance: OBINUTUZUMAB
  3. VENETOCLAX [Concomitant]
     Active Substance: VENETOCLAX
  4. External Beam Radiation Therapy (to skin) [Concomitant]

REACTIONS (4)
  - Rhabdomyolysis [None]
  - Hypertransaminasaemia [None]
  - Diplopia [None]
  - Atrioventricular block complete [None]

NARRATIVE: CASE EVENT DATE: 20250210
